FAERS Safety Report 16375649 (Version 1)
Quarter: 2019Q2

REPORT INFORMATION
  Report Type: Report from Study
  Country: SE (occurrence: SE)
  Receive Date: 20190531
  Receipt Date: 20190531
  Transmission Date: 20190711
  Serious: Yes (Other)
  Sender: FDA-Public Use
  Company Number: SE-ROCHE-2326357

PATIENT

DRUGS (4)
  1. ALTEPLASE. [Suspect]
     Active Substance: ALTEPLASE
     Indication: ACUTE MYOCARDIAL INFARCTION
     Route: 042
  2. HEPARIN [Concomitant]
     Active Substance: HEPARIN SODIUM
     Indication: ACUTE MYOCARDIAL INFARCTION
  3. DALTEPARIN [Concomitant]
     Active Substance: DALTEPARIN
     Indication: ACUTE MYOCARDIAL INFARCTION
  4. ASPIRIN [ACETYLSALICYLIC ACID] [Concomitant]
     Active Substance: ASPIRIN
     Dosage: 150-300 MG
     Route: 065

REACTIONS (4)
  - Cerebrovascular accident [Unknown]
  - Ischaemic stroke [Unknown]
  - Haemorrhage intracranial [Unknown]
  - Haemorrhagic stroke [Unknown]
